FAERS Safety Report 6052895-6 (Version None)
Quarter: 2009Q1

REPORT INFORMATION
  Report Type: 
  Country: None (occurrence: None)
  Receive Date: 20090127
  Receipt Date: 20080421
  Transmission Date: 20090719
  Serious: No
  Sender: FDA-Public Use
  Company Number: US-ABBOTT-08P-163-0464747-00

PATIENT
  Sex: Male
  Weight: 70.37 kg

DRUGS (3)
  1. LUPRON DEPOT [Suspect]
     Indication: PROSTATE CANCER
     Route: 050
     Dates: start: 20071127, end: 20071127
  2. LEUPROLIDE ACETATE [Concomitant]
     Indication: PROSTATE CANCER
     Dosage: 7 DAYS BEFORE AND 7 DAYS AFTER LUPRON
     Route: 058
     Dates: start: 20080220, end: 20080220
  3. BICALUTAMIDE [Concomitant]
     Indication: DRUG USE FOR UNKNOWN INDICATION
     Dosage: 7 DAYS BEFORE AND 7 DAYS AFTER LUPRON

REACTIONS (1)
  - DRUG INEFFECTIVE [None]
